FAERS Safety Report 20985171 (Version 1)
Quarter: 2022Q2

REPORT INFORMATION
  Report Type: Spontaneous
  Country: US (occurrence: None)
  Receive Date: 20220621
  Receipt Date: 20220621
  Transmission Date: 20220721
  Serious: No
  Sender: FDA-Public Use
  Company Number: US-ROCHE-3021679

PATIENT
  Age: 47 Year
  Sex: Female
  Weight: 64.922 kg

DRUGS (2)
  1. XELODA [Suspect]
     Active Substance: CAPECITABINE
     Indication: Triple negative breast cancer
     Dosage: FOUR 500MG TABLETS AFTER BREAKFAST ;ONGOING: YES
     Route: 048
  2. XELODA [Suspect]
     Active Substance: CAPECITABINE
     Dosage: THREE 500MG TABLETS AFTER DINNER ;ONGOING: YES
     Route: 048

REACTIONS (4)
  - White blood cell count decreased [Not Recovered/Not Resolved]
  - Fatigue [Not Recovered/Not Resolved]
  - Onychoclasis [Not Recovered/Not Resolved]
  - Off label use [Unknown]

NARRATIVE: CASE EVENT DATE: 20220101
